FAERS Safety Report 8082737-9 (Version None)
Quarter: 2012Q1

REPORT INFORMATION
  Report Type: 
  Country: None (occurrence: None)
  Receive Date: 20120127
  Receipt Date: 20110209
  Transmission Date: 20120608
  Serious: No
  Sender: FDA-Public Use
  Company Number: US-ABBOTT-11P-163-0703799-00

PATIENT
  Sex: Female
  Weight: 74.91 kg

DRUGS (14)
  1. HUMIRA [Suspect]
     Dates: end: 20101201
  2. HUMIRA [Suspect]
  3. FOLIC ACID [Concomitant]
     Indication: PRODUCT USED FOR UNKNOWN INDICATION
  4. CRANBERRY [Concomitant]
     Indication: CYSTITIS
  5. HUMIRA [Suspect]
     Indication: RHEUMATOID ARTHRITIS
     Dates: end: 20101101
  6. BILBERRY [Concomitant]
     Indication: MACULAR DEGENERATION
  7. CALCIUM [Concomitant]
     Indication: PROPHYLAXIS
  8. METHOTREXATE [Concomitant]
     Indication: RHEUMATOID ARTHRITIS
  9. MULTI-VITAMIN [Concomitant]
     Indication: PRODUCT USED FOR UNKNOWN INDICATION
  10. COD LIVER OIL [Concomitant]
     Indication: ARTHROPATHY
  11. ASCORBIC ACID [Concomitant]
     Indication: PRODUCT USED FOR UNKNOWN INDICATION
  12. METFFORMIN HYDROCHLORIDE [Concomitant]
     Indication: TYPE 2 DIABETES MELLITUS
  13. CRANBERRY [Concomitant]
     Indication: PROPHYLAXIS
  14. ASPIRIN [Concomitant]
     Indication: PROPHYLAXIS

REACTIONS (4)
  - CYSTITIS [None]
  - HYPERTENSION [None]
  - KIDNEY INFECTION [None]
  - VULVOVAGINAL PRURITUS [None]
